APPROVED DRUG PRODUCT: FLUDARABINE PHOSPHATE
Active Ingredient: FLUDARABINE PHOSPHATE
Strength: 50MG/2ML (25MG/ML)
Dosage Form/Route: INJECTABLE;INJECTION
Application: A203738 | Product #001
Applicant: ACTAVIS LLC
Approved: Feb 28, 2017 | RLD: No | RS: No | Type: DISCN